FAERS Safety Report 6442305-9 (Version None)
Quarter: 2009Q4

REPORT INFORMATION
  Report Type: 
  Country: None (occurrence: None)
  Receive Date: 20091116
  Receipt Date: 20091105
  Transmission Date: 20100525
  Serious: Yes (Other)
  Sender: FDA-Public Use
  Company Number: US-MERCK-0911USA01277

PATIENT
  Age: 70 Year
  Sex: Female

DRUGS (1)
  1. JANUVIA [Suspect]
     Route: 048
     Dates: start: 20090101

REACTIONS (1)
  - ACUTE MYELOID LEUKAEMIA [None]
